FAERS Safety Report 7917473-X (Version None)
Quarter: 2011Q4

REPORT INFORMATION
  Report Type: 
  Country: None (occurrence: None)
  Receive Date: 20111116
  Receipt Date: 20111110
  Transmission Date: 20120403
  Serious: Yes (Death, Life-Threatening)
  Sender: FDA-Public Use
  Company Number: JP-ROCHE-603425

PATIENT
  Age: 60 Year
  Sex: Female

DRUGS (4)
  1. DOXORUBICIN HCL [Concomitant]
     Dosage: ROUTE: INTRAVENOUS (NOT OTHERWISE SPECIFIED), DRUG: DOXORUBICIN HYDROCHLORIDE.
     Route: 042
  2. DOXORUBICIN HCL [Suspect]
     Indication: OVARIAN CANCER RECURRENT
     Route: 042
  3. AVASTIN [Suspect]
     Indication: OVARIAN CANCER RECURRENT
     Route: 041
     Dates: start: 20070627, end: 20070828
  4. TAXOL [Concomitant]
     Route: 041

REACTIONS (2)
  - DISEASE PROGRESSION [None]
  - INTESTINAL PERFORATION [None]
